FAERS Safety Report 7917004-4 (Version None)
Quarter: 2011Q4

REPORT INFORMATION
  Report Type: 
  Country: None (occurrence: None)
  Receive Date: 20111114
  Receipt Date: 20111103
  Transmission Date: 20120403
  Serious: Yes (Other)
  Sender: FDA-Public Use
  Company Number: 2011ST000406

PATIENT
  Age: 15 Year
  Sex: Female
  Weight: 63 kg

DRUGS (5)
  1. ABELCET [Suspect]
     Indication: FEBRILE NEUTROPENIA
     Dosage: 200 MG;QD;IV
     Route: 042
     Dates: start: 20110902, end: 20110908
  2. VOXIN [Concomitant]
  3. PIPERACILLIN AND TAZOBACTAM [Concomitant]
  4. METROGYL /00012501/ [Concomitant]
  5. LANOMYCIN /00391001/ [Concomitant]

REACTIONS (5)
  - BODY TEMPERATURE INCREASED [None]
  - RESPIRATORY DISORDER [None]
  - OXYGEN SATURATION DECREASED [None]
  - CHILLS [None]
  - AUTONOMIC NERVOUS SYSTEM IMBALANCE [None]
